FAERS Safety Report 9272255 (Version 1)
Quarter: 2013Q2

REPORT INFORMATION
  Report Type: Spontaneous
  Country: US (occurrence: US)
  Receive Date: 20130506
  Receipt Date: 20130506
  Transmission Date: 20140414
  Serious: No
  Sender: FDA-Public Use
  Company Number: US-ASTRAZENECA-2012SE90248

PATIENT
  Age: 24716 Day
  Sex: Female

DRUGS (8)
  1. PRILOSEC [Suspect]
     Route: 048
     Dates: start: 20121029, end: 20121103
  2. MONOPRIL [Concomitant]
     Dosage: UNKNOWN
  3. ASPIRIN [Concomitant]
     Dosage: UNKNOWN
  4. EMEDRIN [Concomitant]
     Dosage: UNKNOWN
  5. BIOTIN [Concomitant]
     Dosage: UNKNOWN
  6. ONE A DAY [Concomitant]
     Dosage: UNKNOWN
  7. CALCIUM [Concomitant]
     Dosage: UNKNOWN
  8. LEVAQUIN [Concomitant]
     Dosage: UNKNOWN

REACTIONS (4)
  - Hyperchlorhydria [Recovered/Resolved]
  - Nausea [Recovered/Resolved]
  - Incorrect drug administration duration [Unknown]
  - Inappropriate schedule of drug administration [Unknown]
